FAERS Safety Report 14073357 (Version 1)
Quarter: 2017Q4

REPORT INFORMATION
  Report Type: Spontaneous
  Country: US (occurrence: US)
  Receive Date: 20171010
  Receipt Date: 20171010
  Transmission Date: 20180321
  Serious: No
  Sender: FDA-Public Use
  Company Number: US-JNJFOC-20170811886

PATIENT
  Age: 59 Year
  Sex: Male
  Weight: 77.11 kg

DRUGS (7)
  1. EXCEDRIN [Concomitant]
     Active Substance: ACETAMINOPHEN\ASPIRIN\CAFFEINE
     Indication: HEADACHE
     Dosage: DOSE: VARIES, MONTHS
     Route: 065
  2. TYLENOL EXTRA STRENGTH [Suspect]
     Active Substance: ACETAMINOPHEN
     Indication: HEADACHE
     Dosage: VARIES
     Route: 048
  3. ASPIRIN. [Concomitant]
     Active Substance: ASPIRIN
     Indication: HEADACHE
     Dosage: DOSE: VARIES, MONTHS
     Route: 065
  4. RISPERIDONE. [Concomitant]
     Active Substance: RISPERIDONE
     Indication: BIPOLAR DISORDER
     Dosage: 6 YEARS
     Route: 065
  5. KLONOPIN [Concomitant]
     Active Substance: CLONAZEPAM
     Indication: ANXIETY
     Dosage: 6 YEARS
     Route: 065
  6. PROZAC [Concomitant]
     Active Substance: FLUOXETINE HYDROCHLORIDE
     Indication: OBSESSIVE-COMPULSIVE DISORDER
     Dosage: 6 YEARS
     Route: 065
  7. LAMOTRIGINE. [Concomitant]
     Active Substance: LAMOTRIGINE
     Indication: BIPOLAR DISORDER
     Dosage: 6 YEARS
     Route: 065

REACTIONS (3)
  - Product use in unapproved indication [Unknown]
  - Therapeutic response unexpected [Unknown]
  - Off label use [Unknown]
